FAERS Safety Report 9581488 (Version 4)
Quarter: 2013Q4

REPORT INFORMATION
  Report Type: Report from Study
  Country: IN (occurrence: IN)
  Receive Date: 20131002
  Receipt Date: 20131113
  Transmission Date: 20140711
  Serious: Yes (Hospitalization)
  Sender: FDA-Public Use
  Company Number: PHHY2013IN068026

PATIENT
  Age: 62 Year
  Sex: Female

DRUGS (16)
  1. ACLASTA [Suspect]
     Indication: OSTEOPOROSIS
     Dosage: 5 MG/100ML ONCE A YEAR
     Route: 042
     Dates: start: 2011
  2. ACLASTA [Suspect]
     Indication: ARTHRALGIA
     Dosage: 5 MG/100ML ONCE A YEAR
     Route: 042
     Dates: start: 201205
  3. ACLASTA [Suspect]
     Dosage: 5 MG/100ML ONCE A YEAR
     Route: 042
     Dates: start: 20130701
  4. SELOKEN [Concomitant]
     Indication: HYPERTENSION
     Dosage: UNK
     Route: 048
  5. AZTOR [Concomitant]
     Indication: HYPERCHOLESTEROLAEMIA
     Dosage: UNK
     Route: 048
  6. ALFACIP [Concomitant]
     Indication: BLOOD CALCIUM
     Dosage: UNK
     Route: 048
  7. NORFLOXACIN [Concomitant]
     Indication: URINARY TRACT INFECTION
     Dosage: 400 MG, 2 TAB/DAY
     Route: 048
  8. CHYMORAL FORTE [Concomitant]
     Indication: ARTHRALGIA
     Dosage: UNK UKN, TID
     Route: 048
  9. DICLOFENAC [Concomitant]
     Indication: ANALGESIC THERAPY
     Dosage: UNK
     Route: 048
  10. DURAJOINT GM [Concomitant]
     Indication: OSTEOARTHRITIS
     Dosage: UNK UKN, UNK
     Route: 048
  11. CITAL [Concomitant]
     Indication: URINARY TRACT INFECTION
     Dosage: UNK UKN, UNK
  12. ATENOLOL [Concomitant]
     Dosage: QD
     Route: 048
  13. BRUFEN//IBUPROFEN [Concomitant]
     Dosage: UNK
     Route: 048
  14. CIPLOX [Concomitant]
     Dosage: 5 MG, BID
     Route: 048
  15. TRAMAZAC [Concomitant]
     Dosage: UNK UKN, UNK
     Route: 048
  16. SHELCAL [Concomitant]
     Dosage: UNK UKN, QD
     Route: 048

REACTIONS (9)
  - Lower limb fracture [Unknown]
  - Fall [Unknown]
  - Arthralgia [Not Recovered/Not Resolved]
  - Gait disturbance [Not Recovered/Not Resolved]
  - Neck pain [Not Recovered/Not Resolved]
  - Back pain [Not Recovered/Not Resolved]
  - Musculoskeletal pain [Not Recovered/Not Resolved]
  - Musculoskeletal chest pain [Not Recovered/Not Resolved]
  - Pain in extremity [Not Recovered/Not Resolved]
